FAERS Safety Report 6772550-4 (Version None)
Quarter: 2010Q2

REPORT INFORMATION
  Report Type: 
  Country: None (occurrence: None)
  Receive Date: 20100616
  Receipt Date: 20090504
  Transmission Date: 20101027
  Serious: No
  Sender: FDA-Public Use
  Company Number: US-ASTRAZENECA-2009UW11349

PATIENT
  Age: 62 Year
  Sex: Female
  Weight: 99.8 kg

DRUGS (10)
  1. PULMICORT FLEXHALER [Suspect]
     Route: 055
     Dates: start: 20090422
  2. PULMICORT FLEXHALER [Suspect]
     Route: 055
     Dates: start: 20090401
  3. VERAPAMIL [Concomitant]
  4. CRESTOR [Concomitant]
  5. PROTONIX [Concomitant]
  6. SYNTHROID [Concomitant]
  7. XANAX [Concomitant]
  8. COENZYME Q10 [Concomitant]
  9. PROBIOTIC [Concomitant]
  10. CELEBREX [Concomitant]

REACTIONS (1)
  - FEELING ABNORMAL [None]
